FAERS Safety Report 22728878 (Version 3)
Quarter: 2024Q1

REPORT INFORMATION
  Report Type: Spontaneous
  Country: US (occurrence: US)
  Receive Date: 20230720
  Receipt Date: 20240209
  Transmission Date: 20240409
  Serious: No
  Sender: FDA-Public Use
  Company Number: US-Calliditas-2023CAL00864

PATIENT
  Age: 26 Year
  Sex: Male

DRUGS (1)
  1. TARPEYO [Suspect]
     Active Substance: BUDESONIDE
     Indication: IgA nephropathy
     Dosage: 16 MG ( 4 MG CAPSULES) ONCE DAILY
     Route: 048
     Dates: start: 20230628

REACTIONS (4)
  - Product residue present [Recovered/Resolved]
  - Inappropriate schedule of product administration [Recovered/Resolved]
  - Ear infection [Unknown]
  - COVID-19 [Unknown]

NARRATIVE: CASE EVENT DATE: 20230705
